FAERS Safety Report 7341679-4 (Version None)
Quarter: 2011Q1

REPORT INFORMATION
  Report Type: 
  Country: None (occurrence: None)
  Receive Date: 20110309
  Receipt Date: 20110303
  Transmission Date: 20110831
  Serious: No
  Sender: FDA-Public Use
  Company Number: US-PFIZER INC-2011047495

PATIENT
  Sex: Female
  Weight: 61.2 kg

DRUGS (4)
  1. ATENOLOL [Concomitant]
     Indication: HYPERTENSION
     Dosage: 10 MG, 2X/DAY
  2. MEDROXYPROGESTERONE [Suspect]
     Indication: MENORRHAGIA
  3. ATENOLOL [Concomitant]
     Indication: MOOD SWINGS
  4. MEDROXYPROGESTERONE [Suspect]
     Indication: OFF LABEL USE
     Dosage: 150 MG, UNK
     Dates: start: 20110217

REACTIONS (3)
  - HEADACHE [None]
  - DIZZINESS [None]
  - IRRITABILITY [None]
